FAERS Safety Report 13965874 (Version 1)
Quarter: 2017Q3

REPORT INFORMATION
  Report Type: Spontaneous
  Country: US (occurrence: US)
  Receive Date: 20170913
  Receipt Date: 20170913
  Transmission Date: 20171128
  Serious: No
  Sender: FDA-Public Use
  Company Number: US-LPDUSPRD-20171020

PATIENT
  Sex: Female

DRUGS (1)
  1. INJECTAFER [Suspect]
     Active Substance: FERRIC CARBOXYMALTOSE
     Dosage: 750 MG/100 MM NS(1 TOP 1)
     Route: 042
     Dates: start: 20170711

REACTIONS (2)
  - Injection site mass [Unknown]
  - Urticaria [Unknown]

NARRATIVE: CASE EVENT DATE: 20170711
